FAERS Safety Report 9212908 (Version 1)
Quarter: 2013Q2

REPORT INFORMATION
  Report Type: Report from Study
  Country: US (occurrence: US)
  Receive Date: 20130405
  Receipt Date: 20130405
  Transmission Date: 20140414
  Serious: Yes (Other)
  Sender: FDA-Public Use
  Company Number: US-JNJFOC-20130316607

PATIENT
  Sex: 0

DRUGS (6)
  1. REMICADE [Suspect]
     Indication: PUSTULAR PSORIASIS
     Route: 042
  2. REMICADE [Suspect]
     Indication: PUSTULAR PSORIASIS
     Route: 042
     Dates: start: 2010
  3. METHOTREXATE [Suspect]
     Indication: RHEUMATOID ARTHRITIS
     Route: 065
  4. METHOTREXATE [Suspect]
     Indication: RHEUMATOID ARTHRITIS
     Route: 065
  5. CLARITIN [Concomitant]
     Indication: PREMEDICATION
     Route: 065
  6. ZYRTEC [Concomitant]
     Indication: PREMEDICATION
     Route: 065

REACTIONS (8)
  - Systemic lupus erythematosus [Unknown]
  - Hepatic enzyme increased [Recovering/Resolving]
  - Pruritus [Unknown]
  - Rash [Recovering/Resolving]
  - Infusion related reaction [Unknown]
  - Dizziness [Unknown]
  - Erythema [Unknown]
  - Arthralgia [Unknown]
